FAERS Safety Report 5727203-8 (Version None)
Quarter: 2008Q2

REPORT INFORMATION
  Report Type: 
  Country: None (occurrence: None)
  Receive Date: 20080501
  Receipt Date: 20070803
  Transmission Date: 20081010
  Serious: Yes (Other)
  Sender: FDA-Public Use
  Company Number: PHEH2007US02405

PATIENT
  Age: 50 Year
  Sex: Male

DRUGS (5)
  1. LOTREL [Suspect]
     Indication: CARDIAC DISORDER
     Dosage: ORAL
     Route: 048
  2. METOPROLOL TARTRATE [Suspect]
     Indication: CARDIAC DISORDER
     Dosage: ORAL
     Route: 048
  3. NORVASC [Suspect]
     Indication: CARDIAC DISORDER
  4. PLAVIX [Suspect]
     Indication: CARDIAC DISORDER
  5. ASPIRIN [Suspect]

REACTIONS (2)
  - BLOOD PRESSURE INADEQUATELY CONTROLLED [None]
  - MYOCARDIAL INFARCTION [None]
